FAERS Safety Report 8390649-6 (Version None)
Quarter: 2012Q2

REPORT INFORMATION
  Report Type: 
  Country: None (occurrence: None)
  Receive Date: 20120529
  Receipt Date: 20120528
  Transmission Date: 20120825
  Serious: Yes (Hospitalization, Disabling, Other)
  Sender: FDA-Public Use
  Company Number: PHFR2012IE002120

PATIENT
  Sex: Female

DRUGS (9)
  1. LANSOPRAZOLE [Concomitant]
     Dosage: 30 MG, QD
     Route: 048
  2. CLOZARIL [Suspect]
     Indication: SCHIZOPHRENIA
     Dosage: 125 MG, NOCTE
     Route: 048
     Dates: start: 20100422
  3. ENOXAPARIN SODIUM [Concomitant]
     Dosage: 40 MG, QD
     Route: 058
  4. MOVIPREP [Concomitant]
     Route: 048
  5. DICLOFENAC [Concomitant]
     Dosage: 75 MG, PRN
     Route: 030
  6. DICLOFENAC [Concomitant]
     Dosage: 75 MG, BID
     Route: 048
  7. ACETAMINOPHEN [Concomitant]
     Dosage: 1 G, QD
     Route: 048
  8. OXYCONTIN [Concomitant]
     Dosage: 5 MG, QD
     Route: 048
  9. LACTULOSE [Concomitant]
     Dosage: 10 ML, BID
     Route: 048

REACTIONS (3)
  - ANTIPSYCHOTIC DRUG LEVEL INCREASED [None]
  - FEMUR FRACTURE [None]
  - FALL [None]
